FAERS Safety Report 7344139-X (Version None)
Quarter: 2011Q1

REPORT INFORMATION
  Report Type: 
  Country: None (occurrence: None)
  Receive Date: 20110310
  Receipt Date: 20100707
  Transmission Date: 20110831
  Serious: No
  Sender: FDA-Public Use
  Company Number: A0868904A

PATIENT
  Age: 66 Year
  Sex: Female

DRUGS (1)
  1. NICORETTE [Suspect]
     Dates: end: 20100705

REACTIONS (1)
  - DIARRHOEA [None]
